FAERS Safety Report 10616681 (Version 3)
Quarter: 2015Q4

REPORT INFORMATION
  Report Type: Spontaneous
  Country: FR (occurrence: FR)
  Receive Date: 20141201
  Receipt Date: 20151228
  Transmission Date: 20160304
  Serious: Yes (Hospitalization)
  Sender: FDA-Public Use
  Company Number: FR-GLAXOSMITHKLINE-FR2014GSK006391

PATIENT
  Age: 14 Year
  Sex: Male

DRUGS (12)
  1. DOXORUBICIN [Suspect]
     Active Substance: DOXORUBICIN
     Indication: EWING^S SARCOMA
     Route: 042
     Dates: start: 20140626, end: 20140628
  2. IFOSFAMIDE. [Suspect]
     Active Substance: IFOSFAMIDE
     Route: 065
     Dates: start: 20140721
  3. VINCRISTINE SULFATE. [Suspect]
     Active Substance: VINCRISTINE SULFATE
     Indication: EWING^S SARCOMA
     Route: 042
     Dates: start: 20140626, end: 20140626
  4. EMEND [Suspect]
     Active Substance: APREPITANT
     Indication: NAUSEA
     Route: 048
     Dates: start: 20140626, end: 20140628
  5. IFOSFAMIDE. [Suspect]
     Active Substance: IFOSFAMIDE
     Indication: EWING^S SARCOMA
     Route: 042
     Dates: start: 20140626, end: 20140627
  6. NALBUPHINE [Suspect]
     Active Substance: NALBUPHINE
     Indication: PAIN
     Route: 042
     Dates: start: 20140627, end: 20140628
  7. PLITICAN [Suspect]
     Active Substance: ALIZAPRIDE HYDROCHLORIDE
     Indication: NAUSEA
     Route: 042
     Dates: start: 20140626, end: 20140627
  8. ZOPHREN [Suspect]
     Active Substance: ONDANSETRON
     Indication: NAUSEA
     Dosage: UNK
     Route: 042
     Dates: start: 20140626, end: 20140628
  9. IFOSFAMIDE. [Suspect]
     Active Substance: IFOSFAMIDE
     Route: 065
     Dates: start: 20140915
  10. ABENOL [Suspect]
     Active Substance: ACETAMINOPHEN
     Indication: PAIN
     Route: 042
     Dates: start: 20140627, end: 20140628
  11. ETOPOPHOS [Suspect]
     Active Substance: ETOPOSIDE PHOSPHATE
     Indication: EWING^S SARCOMA
     Route: 042
     Dates: start: 20140626, end: 20140628
  12. UROMITEXAN [Suspect]
     Active Substance: MESNA
     Indication: EWING^S SARCOMA
     Route: 042
     Dates: start: 20140626, end: 20140627

REACTIONS (7)
  - Amnesia [Recovered/Resolved]
  - Palpitations [None]
  - Depersonalisation [None]
  - Tachycardia [None]
  - Feeling abnormal [None]
  - Somnolence [Recovered/Resolved]
  - Hypoaesthesia [None]

NARRATIVE: CASE EVENT DATE: 20140627
